FAERS Safety Report 5082076-4 (Version None)
Quarter: 2006Q3

REPORT INFORMATION
  Report Type: 
  Country: None (occurrence: None)
  Receive Date: 20060811
  Receipt Date: 20060731
  Transmission Date: 20061208
  Serious: Yes (Other)
  Sender: FDA-Public Use
  Company Number: 2006088513

PATIENT
  Sex: Male

DRUGS (1)
  1. GLIPIZIDE [Suspect]
     Indication: DIABETES MELLITUS NON-INSULIN-DEPENDENT
     Dosage: 15 MG (5 M G, 3 IN 1 D), ORAL
     Route: 048
     Dates: end: 20060701

REACTIONS (2)
  - BLOOD GLUCOSE INCREASED [None]
  - THYROID CANCER [None]
